FAERS Safety Report 14062764 (Version 1)
Quarter: 2017Q4

REPORT INFORMATION
  Report Type: Report from Study
  Country: US (occurrence: US)
  Receive Date: 20171009
  Receipt Date: 20171009
  Transmission Date: 20180321
  Serious: No
  Sender: FDA-Public Use
  Company Number: US-AMGEN-USASL2017074647

PATIENT
  Age: 65 Year
  Sex: Female

DRUGS (4)
  1. CALCIUM [Concomitant]
     Active Substance: CALCIUM
     Dosage: UNK
  2. TRAMADOL. [Concomitant]
     Active Substance: TRAMADOL
     Indication: ARTHRITIS
     Dosage: UNK
  3. PROLIA [Suspect]
     Active Substance: DENOSUMAB
     Indication: OSTEOPOROSIS POSTMENOPAUSAL
     Dosage: UNK
     Route: 065
  4. VITAMIN D [Concomitant]
     Active Substance: CHOLECALCIFEROL
     Dosage: UNK

REACTIONS (4)
  - Tooth disorder [Unknown]
  - Throat tightness [Unknown]
  - Dyspnoea [Unknown]
  - Hypersensitivity [Unknown]
